FAERS Safety Report 16540226 (Version 1)
Quarter: 2019Q3

REPORT INFORMATION
  Report Type: Spontaneous
  Country: US (occurrence: US)
  Receive Date: 20190708
  Receipt Date: 20190708
  Transmission Date: 20191004
  Serious: Yes (Other)
  Sender: FDA-Public Use
  Company Number: PHHY2019US148657

PATIENT
  Age: 74 Year
  Sex: Female

DRUGS (3)
  1. DORZOLAMIDE HYDROCHLORIDE. [Suspect]
     Active Substance: DORZOLAMIDE HYDROCHLORIDE
     Indication: OCULAR HYPERTENSION
     Route: 047
  2. BRIMONIDINE [Suspect]
     Active Substance: BRIMONIDINE TARTRATE
     Indication: OCULAR HYPERTENSION
     Route: 047
  3. LATANOPROST. [Concomitant]
     Active Substance: LATANOPROST
     Indication: OCULAR HYPERTENSION
     Dosage: UNK
     Route: 047

REACTIONS (11)
  - Endocrine ophthalmopathy [Recovering/Resolving]
  - Eye pain [Recovering/Resolving]
  - Eyelid disorder [Recovering/Resolving]
  - Ocular hyperaemia [Recovering/Resolving]
  - Conjunctival hyperaemia [Recovered/Resolved]
  - Photophobia [Recovering/Resolving]
  - Toxicity to various agents [Unknown]
  - Concomitant disease aggravated [Recovering/Resolving]
  - Eye oedema [Recovering/Resolving]
  - Conjunctival oedema [Recovered/Resolved]
  - Eyelid oedema [Recovering/Resolving]
